FAERS Safety Report 7270190-4 (Version None)
Quarter: 2011Q1

REPORT INFORMATION
  Report Type: 
  Country: None (occurrence: None)
  Receive Date: 20110202
  Receipt Date: 20110121
  Transmission Date: 20110831
  Serious: Yes (Hospitalization)
  Sender: FDA-Public Use
  Company Number: US-ELI_LILLY_AND_COMPANY-US201012006159

PATIENT
  Sex: Female

DRUGS (2)
  1. ZYPREXA [Suspect]
     Dosage: 10 MG, 3/D
     Dates: start: 20061001
  2. ALCOHOL [Concomitant]

REACTIONS (5)
  - HAEMORRHAGE [None]
  - OVERDOSE [None]
  - ACCIDENT [None]
  - INJURY [None]
  - MULTIPLE FRACTURES [None]
